FAERS Safety Report 6680904-X (Version None)
Quarter: 2010Q2

REPORT INFORMATION
  Report Type: 
  Country: None (occurrence: None)
  Receive Date: 20100414
  Receipt Date: 20100407
  Transmission Date: 20101027
  Serious: Yes (Hospitalization)
  Sender: FDA-Public Use
  Company Number: DE-SANOFI-AVENTIS-2010SA020139

PATIENT
  Age: 74 Year
  Sex: Female

DRUGS (4)
  1. MULTAQ [Suspect]
     Indication: ATRIAL FIBRILLATION
     Route: 048
  2. TAVANIC [Concomitant]
     Indication: DRUG USE FOR UNKNOWN INDICATION
  3. DIGITALIS TAB [Concomitant]
     Indication: DRUG USE FOR UNKNOWN INDICATION
  4. BETA BLOCKING AGENTS [Concomitant]
     Indication: DRUG USE FOR UNKNOWN INDICATION

REACTIONS (2)
  - CONTRAINDICATION TO MEDICAL TREATMENT [None]
  - TORSADE DE POINTES [None]
